FAERS Safety Report 5246450-5 (Version None)
Quarter: 2007Q1

REPORT INFORMATION
  Report Type: 
  Country: None (occurrence: None)
  Receive Date: 20070216
  Receipt Date: 20070205
  Transmission Date: 20070707
  Serious: Yes (Hospitalization)
  Sender: FDA-Public Use
  Company Number: 100#03#2007-00426

PATIENT
  Age: 82 Year
  Sex: 0

DRUGS (4)
  1. CITALOPRAM HYDROBROMIDE [Suspect]
     Indication: DEPRESSION
     Dosage: 10 MG ORAL
     Route: 048
     Dates: start: 20061224, end: 20061225
  2. LORAZEPAM [Concomitant]
  3. MAXOLON [Concomitant]
  4. QUININE SULFATE [Concomitant]

REACTIONS (2)
  - HYPONATRAEMIA [None]
  - URINARY RETENTION [None]
